FAERS Safety Report 24954975 (Version 2)
Quarter: 2025Q1

REPORT INFORMATION
  Report Type: Spontaneous
  Country: JP (occurrence: JP)
  Receive Date: 20250211
  Receipt Date: 20250301
  Transmission Date: 20250409
  Serious: Yes (Hospitalization)
  Sender: ACCORD
  Company Number: JP-MLMSERVICE-20250129-PI347761-00050-4

PATIENT
  Age: 97 Year
  Sex: Female
  Weight: 35 kg

DRUGS (2)
  1. AMLODIPINE [Suspect]
     Active Substance: AMLODIPINE BESYLATE
     Indication: Hypertension
     Route: 048
  2. MAGNESIUM OXIDE [Suspect]
     Active Substance: MAGNESIUM OXIDE
     Indication: Constipation

REACTIONS (2)
  - BRASH syndrome [Recovered/Resolved]
  - Hypermagnesaemia [Recovered/Resolved]
